FAERS Safety Report 7742990-5 (Version None)
Quarter: 2011Q3

REPORT INFORMATION
  Report Type: 
  Country: None (occurrence: None)
  Receive Date: 20110912
  Receipt Date: 20110831
  Transmission Date: 20111222
  Serious: Yes (Other)
  Sender: FDA-Public Use
  Company Number: US-BAYER-201038017NA

PATIENT
  Age: 45 Year
  Sex: Female
  Weight: 49.433 kg

DRUGS (17)
  1. LORAZEPAM [Concomitant]
     Indication: ANXIETY
     Dosage: 0.5 MG, UNK
     Route: 048
     Dates: start: 20060101
  2. YASMIN [Suspect]
     Indication: CONTRACEPTION
  3. FLOVENT [Concomitant]
     Indication: ASTHMA
     Dosage: UNK
     Dates: start: 20070101, end: 20090101
  4. ALBUTEROL SULFATE [Concomitant]
     Dosage: 0.9 MG, PRN
     Route: 055
     Dates: start: 20070101, end: 20080101
  5. TRAZODONE HCL [Concomitant]
     Indication: DEPRESSION
     Dosage: 100 MG, UNK
     Route: 048
     Dates: start: 20060101, end: 20090101
  6. DARVOCET-N 50 [Concomitant]
     Route: 048
  7. DICLOFENAC SODIUM [Concomitant]
     Dosage: 75 MG, UNK
     Route: 048
  8. YASMIN [Suspect]
     Indication: PREMENSTRUAL SYNDROME
     Dosage: UNK
     Route: 048
     Dates: start: 20060501, end: 20080701
  9. YASMIN [Suspect]
  10. ADVAIR DISKUS 100/50 [Concomitant]
     Dosage: UNK
     Route: 055
     Dates: start: 20080101
  11. LORAZEPAM [Concomitant]
     Indication: SLEEP DISORDER
  12. NASONEX [Concomitant]
     Dosage: 0.5 MG, UNK
     Route: 048
     Dates: start: 20070101, end: 20090101
  13. MYLANTA [ALUMINIUM HYDROXIDE GEL, DRIED,MAGNESIUM HYDROXIDE,SIMETI [Concomitant]
     Route: 048
  14. SKELAXIN [Concomitant]
     Dosage: 800 MG, QD
     Route: 048
  15. AZITHROMYCIN [Concomitant]
     Dosage: 200 MG, UNK
     Dates: start: 20070901, end: 20080901
  16. VOLTAREN [Concomitant]
     Route: 048
  17. RANITIDINE [Concomitant]
     Dosage: 150 MG, UNK
     Route: 048

REACTIONS (5)
  - GALLBLADDER DISORDER [None]
  - VOMITING [None]
  - GALLBLADDER CHOLESTEROLOSIS [None]
  - CHOLECYSTITIS CHRONIC [None]
  - ABDOMINAL PAIN UPPER [None]
